FAERS Safety Report 7950165-X (Version None)
Quarter: 2011Q4

REPORT INFORMATION
  Report Type: 
  Country: None (occurrence: None)
  Receive Date: 20111130
  Receipt Date: 20111122
  Transmission Date: 20120403
  Serious: Yes (Other)
  Sender: FDA-Public Use
  Company Number: US-ABBOTT-11P-163-0877143-00

PATIENT
  Sex: Female
  Weight: 60.836 kg

DRUGS (2)
  1. HUMIRA [Suspect]
     Indication: PSORIATIC ARTHROPATHY
     Dates: start: 20100101
  2. DIOVAN [Concomitant]
     Indication: HYPERTENSION
     Route: 048

REACTIONS (2)
  - TOOTH FRACTURE [None]
  - TOOTHACHE [None]
